FAERS Safety Report 8775330 (Version 2)
Quarter: 2012Q4

REPORT INFORMATION
  Report Type: Report from Study
  Country: JP (occurrence: JP)
  Receive Date: 20120912
  Receipt Date: 20120917
  Transmission Date: 20130627
  Serious: Yes (Hospitalization)
  Sender: FDA-Public Use
  Company Number: JP-009507513-1209JPN000432

PATIENT

DRUGS (4)
  1. JANUVIA TABLETS 50MG [Suspect]
     Indication: TYPE 2 DIABETES MELLITUS
     Dosage: 50 mg, qd
     Route: 048
     Dates: start: 20100806, end: 20120319
  2. NORVASC [Concomitant]
     Indication: HYPERTENSION
     Dosage: 5 mg, qd
     Route: 048
  3. FLUITRAN [Concomitant]
     Indication: HYPERTENSION
     Dosage: 2 mg, qd
     Route: 048
     Dates: start: 20110620
  4. LIVALO [Concomitant]
     Indication: DYSLIPIDAEMIA
     Dosage: 2 mg, qd
     Route: 048
     Dates: start: 20070521

REACTIONS (2)
  - Diabetes mellitus [Recovered/Resolved]
  - Drug ineffective [Unknown]
